FAERS Safety Report 14075597 (Version 1)
Quarter: 2017Q4

REPORT INFORMATION
  Report Type: Spontaneous
  Country: AU (occurrence: AU)
  Receive Date: 20171010
  Receipt Date: 20171010
  Transmission Date: 20180321
  Serious: Yes (Other)
  Sender: FDA-Public Use
  Company Number: AU-009507513-1702AUS005540

PATIENT
  Age: 24 Year
  Sex: Male

DRUGS (1)
  1. BRIDION [Suspect]
     Active Substance: SUGAMMADEX
     Indication: NEUROMUSCULAR BLOCKADE REVERSAL
     Dosage: UNK
     Dates: start: 2012, end: 2012

REACTIONS (2)
  - Pulmonary oedema [Unknown]
  - Petechiae [Unknown]

NARRATIVE: CASE EVENT DATE: 2012
